FAERS Safety Report 20679478 (Version 2)
Quarter: 2022Q3

REPORT INFORMATION
  Report Type: Spontaneous
  Country: US (occurrence: US)
  Receive Date: 20220406
  Receipt Date: 20220708
  Transmission Date: 20221026
  Serious: No
  Sender: FDA-Public Use
  Company Number: US-ALLERGAN-2209603US

PATIENT
  Age: 59 Year
  Sex: Female
  Weight: 82.1 kg

DRUGS (2)
  1. QULIPTA [Suspect]
     Active Substance: ATOGEPANT
     Indication: Migraine prophylaxis
     Dosage: 60 MG, QD
     Route: 048
     Dates: start: 202111, end: 202201
  2. LAMICTAL [Concomitant]
     Active Substance: LAMOTRIGINE
     Indication: Affective disorder

REACTIONS (2)
  - Alopecia [Unknown]
  - Affective disorder [Unknown]

NARRATIVE: CASE EVENT DATE: 20220101
